FAERS Safety Report 21134569 (Version 1)
Quarter: 2022Q3

REPORT INFORMATION
  Report Type: Report from Study
  Country: GB (occurrence: GB)
  Receive Date: 20220727
  Receipt Date: 20220727
  Transmission Date: 20221026
  Serious: Yes (Hospitalization, Other)
  Sender: FDA-Public Use
  Company Number: GB-CELGENE-GBR-20220202155

PATIENT
  Sex: Female
  Weight: 62.4 kg

DRUGS (15)
  1. AZACITIDINE [Suspect]
     Active Substance: AZACITIDINE
     Indication: Acute myeloid leukaemia
     Route: 048
     Dates: start: 20211014, end: 20220110
  2. SODIUM PHOSPHATE, MONOBASIC, ANHYDROUS [Concomitant]
     Active Substance: SODIUM PHOSPHATE, MONOBASIC, ANHYDROUS
     Indication: Blood calcium increased
     Dosage: TT
     Route: 065
     Dates: start: 20220208, end: 20220228
  3. POTASSIUM BICARBONATE\POTASSIUM CHLORIDE [Concomitant]
     Active Substance: POTASSIUM BICARBONATE\POTASSIUM CHLORIDE
     Indication: Blood potassium decreased
     Dosage: TT
     Route: 065
     Dates: start: 20220208, end: 20220228
  4. METOCLOPRAMIDE [Concomitant]
     Active Substance: METOCLOPRAMIDE
     Indication: Antiemetic supportive care
     Dosage: 30 MILLIGRAM
     Route: 065
     Dates: start: 20220207
  5. CIPROFLOXACIN [Concomitant]
     Active Substance: CIPROFLOXACIN
     Indication: Bacterial infection
     Dosage: 1000 MILLIGRAM
     Route: 065
     Dates: start: 20220207
  6. POSACONAZOLE [Concomitant]
     Active Substance: POSACONAZOLE
     Indication: Antifungal prophylaxis
     Dosage: 600 MILLIGRAM
     Route: 065
     Dates: start: 20220208
  7. OMEPRAZOLE [Concomitant]
     Active Substance: OMEPRAZOLE
     Indication: Antacid therapy
     Dosage: 40 MILLIGRAM
     Route: 065
     Dates: start: 20220208
  8. FOLIC ACID [Concomitant]
     Active Substance: FOLIC ACID
     Indication: Prophylaxis
     Dosage: 10 MILLIGRAM
     Route: 065
     Dates: start: 20220208
  9. LEVOTHYROXINE [Concomitant]
     Active Substance: LEVOTHYROXINE
     Indication: Hypothyroidism
     Dosage: 250 MILLIGRAM
     Route: 065
     Dates: start: 20220207
  10. CALCIUM\CHOLECALCIFEROL [Concomitant]
     Active Substance: CALCIUM\CHOLECALCIFEROL
     Indication: Mineral supplementation
     Dosage: T
     Route: 065
     Dates: start: 20220207, end: 20220228
  11. URSODIOL [Concomitant]
     Active Substance: URSODIOL
     Indication: Prophylaxis
     Dosage: 980 MILLIGRAM
     Route: 065
     Dates: start: 20220207
  12. Nicotin Inhaler [Concomitant]
     Indication: Smoking cessation therapy
     Dosage: 10 MILLIGRAM
     Route: 065
     Dates: start: 20220208
  13. CYCLIZINE [Concomitant]
     Active Substance: CYCLIZINE
     Indication: Prophylaxis of nausea and vomiting
     Dosage: UNK MG TID
     Route: 065
     Dates: start: 20220208
  14. CLOTRIMAZOLE [Concomitant]
     Active Substance: CLOTRIMAZOLE
     Indication: Ear infection
     Route: 065
     Dates: start: 20220228
  15. ACYCLOVIR [Concomitant]
     Active Substance: ACYCLOVIR
     Indication: Ear infection
     Route: 065
     Dates: start: 20220228, end: 20220307

REACTIONS (1)
  - Pancytopenia [Recovered/Resolved]

NARRATIVE: CASE EVENT DATE: 20220207
